FAERS Safety Report 15944722 (Version 1)
Quarter: 2019Q1

REPORT INFORMATION
  Report Type: Spontaneous
  Country: US (occurrence: US)
  Receive Date: 20190211
  Receipt Date: 20190211
  Transmission Date: 20190417
  Serious: Yes (Other)
  Sender: FDA-Public Use
  Company Number: None

PATIENT
  Weight: 56.25 kg

DRUGS (2)
  1. MULTIHANCE [Suspect]
     Active Substance: GADOBENATE DIMEGLUMINE
     Indication: NUCLEAR MAGNETIC RESONANCE IMAGING
     Dosage: ?          OTHER FREQUENCY:DONE AT THE MRI WI;?
     Route: 042
  2. ENALAPRIL [Concomitant]
     Active Substance: ENALAPRIL

REACTIONS (13)
  - Malaise [None]
  - Bone pain [None]
  - Fatigue [None]
  - Feeling abnormal [None]
  - Vomiting [None]
  - Tinnitus [None]
  - Body temperature decreased [None]
  - Poisoning [None]
  - Weight decreased [None]
  - Metal poisoning [None]
  - Neuropathy peripheral [None]
  - Asthenia [None]
  - Bedridden [None]
